FAERS Safety Report 12426972 (Version 1)
Quarter: 2016Q2

REPORT INFORMATION
  Report Type: Spontaneous
  Country: US (occurrence: US)
  Receive Date: 20160601
  Receipt Date: 20160601
  Transmission Date: 20160815
  Serious: No
  Sender: FDA-Public Use
  Company Number: US-SEPTODONT-201603287

PATIENT
  Age: 60 Year
  Sex: Female
  Weight: 200 kg

DRUGS (3)
  1. SEPTOCAINE AND EPINEPHRINE [Suspect]
     Active Substance: ARTICAINE HYDROCHLORIDE\EPINEPHRINE BITARTRATE
     Indication: LOCAL ANAESTHESIA
     Dosage: ADMINISTERED 1 CARTRIDGE VIA IAN/LINGUAL BLOCK COMBINATION FOR CROWN PREPARATION-1ST PERMANENT MOLAR
     Route: 004
  2. CITANEST PLAIN [Suspect]
     Active Substance: PRILOCAINE HYDROCHLORIDE
     Indication: LOCAL ANAESTHESIA
     Dosage: PERFORMED PREPARATORY INJECTION
     Route: 004
  3. SEPTOCAINE AND EPINEPHRINE [Suspect]
     Active Substance: ARTICAINE HYDROCHLORIDE\EPINEPHRINE BITARTRATE
     Indication: LOCAL ANAESTHESIA
     Dosage: ADMINISTERED 1 CARTRIDGE USING IAN/LINGUAL BLOCK WITH 30G LUERLOCK NEEDLE VIA WAND FOR CROWN SEATING
     Route: 004

REACTIONS (1)
  - Hypoaesthesia [Not Recovered/Not Resolved]
